FAERS Safety Report 6816509-7 (Version None)
Quarter: 2010Q3

REPORT INFORMATION
  Report Type: 
  Country: None (occurrence: None)
  Receive Date: 20100706
  Receipt Date: 20100309
  Transmission Date: 20110219
  Serious: Yes (Hospitalization, Other)
  Sender: FDA-Public Use
  Company Number: US-ASTRAZENECA-2008UW18896

PATIENT
  Age: 47 Year
  Sex: Female
  Weight: 89.8 kg

DRUGS (6)
  1. SEROQUEL [Suspect]
     Indication: BIPOLAR DISORDER
     Dosage: 25 TO 200 MG
     Route: 048
     Dates: start: 20021107
  2. SEROQUEL [Suspect]
     Dosage: 25 MG TO 100 MG
     Route: 048
     Dates: start: 20050913
  3. PROZAC [Concomitant]
  4. LITHIUM CARBONATE [Concomitant]
  5. METHADONE HCL [Concomitant]
  6. LAMICTAL [Concomitant]
     Dates: start: 20050913

REACTIONS (3)
  - ANIMAL BITE [None]
  - ARTHROPATHY [None]
  - DIABETES MELLITUS [None]
